FAERS Safety Report 4848147-X (Version None)
Quarter: 2005Q4

REPORT INFORMATION
  Report Type: 
  Country: None (occurrence: None)
  Receive Date: 20051205
  Receipt Date: 20051205
  Transmission Date: 20060501
  Serious: Yes (Hospitalization)
  Sender: FDA-Public Use
  Company Number: None

PATIENT
  Age: 73 Year
  Sex: Male
  Weight: 73 kg

DRUGS (11)
  1. OXALIPLATIN @ 130MG/M2 Q 3 WKS [Suspect]
     Indication: GASTROOESOPHAGEAL CANCER
     Dosage: 230 MG
     Dates: start: 20050927
  2. OXALIPLATIN @ 130MG/M2 Q 3 WKS [Suspect]
     Indication: METASTASIS
     Dosage: 230 MG
     Dates: start: 20050927
  3. OXALIPLATIN @ 130MG/M2 Q 3 WKS [Suspect]
     Indication: GASTROOESOPHAGEAL CANCER
     Dosage: 230 MG
     Dates: start: 20051018
  4. OXALIPLATIN @ 130MG/M2 Q 3 WKS [Suspect]
     Indication: METASTASIS
     Dosage: 230 MG
     Dates: start: 20051018
  5. OXALIPLATIN @ 130MG/M2 Q 3 WKS [Suspect]
     Indication: GASTROOESOPHAGEAL CANCER
     Dosage: 230 MG
     Dates: start: 20051115
  6. OXALIPLATIN @ 130MG/M2 Q 3 WKS [Suspect]
     Indication: METASTASIS
     Dosage: 230 MG
     Dates: start: 20051115
  7. DOCETAXEL @ 45MG/M2 Q WK X 2 OF 3 [Suspect]
     Indication: GASTROOESOPHAGEAL CANCER
     Dosage: 79.6 MG
     Dates: start: 20050927, end: 20051122
  8. DOCETAXEL @ 45MG/M2 Q WK X 2 OF 3 [Suspect]
     Indication: METASTASIS
     Dosage: 79.6 MG
     Dates: start: 20050927, end: 20051122
  9. LIPITOR [Concomitant]
  10. METOPROLOL [Concomitant]
  11. K-DUR 10 [Concomitant]

REACTIONS (3)
  - DEEP VEIN THROMBOSIS [None]
  - NEUTROPENIA [None]
  - PNEUMONIA [None]
